FAERS Safety Report 7422277-0 (Version None)
Quarter: 2011Q2

REPORT INFORMATION
  Report Type: 
  Country: None (occurrence: None)
  Receive Date: 20110419
  Receipt Date: 20110412
  Transmission Date: 20111010
  Serious: Yes (Hospitalization)
  Sender: FDA-Public Use
  Company Number: US-BIOGENIDEC-2011BI007050

PATIENT
  Age: 41 Year
  Sex: Female

DRUGS (2)
  1. TYSABRI [Suspect]
     Indication: MULTIPLE SCLEROSIS
     Route: 042
     Dates: start: 20071228, end: 20101026
  2. TYSABRI [Suspect]
     Route: 042
     Dates: start: 20110307

REACTIONS (4)
  - CLOSTRIDIUM DIFFICILE COLITIS [None]
  - APPENDICITIS [None]
  - ENTERITIS INFECTIOUS [None]
  - TRIGEMINAL NEURALGIA [None]
